FAERS Safety Report 4366855-4 (Version None)
Quarter: 2004Q2

REPORT INFORMATION
  Report Type: 
  Country: None (occurrence: None)
  Receive Date: 20040524
  Receipt Date: 20040517
  Transmission Date: 20050107
  Serious: Yes (Death, Hospitalization, Other)
  Sender: FDA-Public Use
  Company Number: 2003-03-1471

PATIENT
  Age: 55 Year
  Sex: Female
  Weight: 90.7194 kg

DRUGS (29)
  1. VANCERIL DOUBLE STRENGTH [Suspect]
     Indication: ASTHMA
     Dosage: 4 PUFFS BID ORAL AER INH
     Route: 055
     Dates: start: 19980306, end: 20000317
  2. ATROVENT [Concomitant]
  3. SEREVENT [Concomitant]
  4. ZYRTEC [Concomitant]
  5. CLARITIN [Concomitant]
  6. ZOLOFT [Concomitant]
  7. PROVENTIL [Concomitant]
  8. NASONEX [Concomitant]
  9. ACCOLATE [Concomitant]
  10. SINGULAR (MONTELEUKAST SODIUM) [Concomitant]
  11. ATIVAN [Concomitant]
  12. ZOVIRAX [Concomitant]
  13. ELAVIL [Concomitant]
  14. DELTASONE [Concomitant]
  15. CLOBETASOL [Concomitant]
  16. BIAXIN [Concomitant]
  17. DURATUSS [Concomitant]
  18. LIDEX [Concomitant]
  19. KENALOG [Concomitant]
  20. LAC-HYDRIN [Concomitant]
  21. ULTRAVATE [Concomitant]
  22. VANCENASE [Concomitant]
  23. DECONSAL [Concomitant]
  24. HISMANAL [Concomitant]
  25. MEDROL [Concomitant]
  26. SPORANOX [Concomitant]
  27. PROZAC [Concomitant]
  28. ZYRTEC [Concomitant]
  29. CETAPHIL [Concomitant]

REACTIONS (25)
  - ACUTE RESPIRATORY FAILURE [None]
  - ANXIETY [None]
  - ASTHMA [None]
  - BLOOD PRESSURE SYSTOLIC INCREASED [None]
  - BRAIN OEDEMA [None]
  - CARDIO-RESPIRATORY ARREST [None]
  - CYANOSIS [None]
  - DIARRHOEA [None]
  - DRUG INEFFECTIVE [None]
  - DYSPNOEA [None]
  - FATIGUE [None]
  - HEADACHE [None]
  - HEART RATE INCREASED [None]
  - HYPOXIC ENCEPHALOPATHY [None]
  - INFLUENZA LIKE ILLNESS [None]
  - LUNG HYPERINFLATION [None]
  - MEDICATION ERROR [None]
  - NAUSEA [None]
  - NEUROTOXICITY [None]
  - PHARMACEUTICAL PRODUCT COMPLAINT [None]
  - PYREXIA [None]
  - RHINITIS [None]
  - SOMNOLENCE [None]
  - TINNITUS [None]
  - VOMITING [None]
